FAERS Safety Report 5104040-9 (Version None)
Quarter: 2006Q3

REPORT INFORMATION
  Report Type: 
  Country: None (occurrence: None)
  Receive Date: 20060908
  Receipt Date: 20060824
  Transmission Date: 20061208
  Serious: Yes (Hospitalization)
  Sender: FDA-Public Use
  Company Number: US-2005-010886

PATIENT
  Age: 50 Year
  Sex: Female
  Weight: 65 kg

DRUGS (7)
  1. BETASERON [Suspect]
     Indication: RELAPSING-REMITTING MULTIPLE SCLEROSIS
     Dosage: SEE IMAGE
     Dates: start: 19970407, end: 20050503
  2. BETASERON [Suspect]
     Indication: RELAPSING-REMITTING MULTIPLE SCLEROSIS
     Dosage: SEE IMAGE
     Dates: start: 20050510
  3. ZELNORM /USA/ (TEGASEROD) [Concomitant]
  4. ACIPHEX [Concomitant]
  5. WELLBUTRIN [Concomitant]
  6. ZYPREXA [Concomitant]
  7. RESTORIL [Concomitant]

REACTIONS (13)
  - CONDITION AGGRAVATED [None]
  - DEPRESSION [None]
  - FASCIITIS [None]
  - GASTROOESOPHAGEAL REFLUX DISEASE [None]
  - HEMIPARESIS [None]
  - INJECTION SITE CELLULITIS [None]
  - INJECTION SITE INFECTION [None]
  - INJECTION SITE REACTION [None]
  - IRRITABLE BOWEL SYNDROME [None]
  - MEMORY IMPAIRMENT [None]
  - MULTIPLE SCLEROSIS [None]
  - MYOSITIS [None]
  - PAIN IN EXTREMITY [None]
